FAERS Safety Report 24170198 (Version 1)
Quarter: 2024Q3

REPORT INFORMATION
  Report Type: Spontaneous
  Country: FR (occurrence: FR)
  Receive Date: 20240803
  Receipt Date: 20240803
  Transmission Date: 20241017
  Serious: Yes (Other)
  Sender: AUROBINDO
  Company Number: FR-AFSSAPS-NY2024000813

PATIENT
  Age: 90 Year
  Sex: Female
  Weight: 54.5 kg

DRUGS (8)
  1. SERTRALINE HYDROCHLORIDE [Interacting]
     Active Substance: SERTRALINE HYDROCHLORIDE
     Indication: Depression
     Dosage: 50 MILLIGRAM, ONCE A DAY (1 CAPSULE IN THE EVENING FROM 04/29 TO 06/24/2024 THEN 2 CAPSULES IN THE E
     Route: 048
     Dates: start: 20240429, end: 20240624
  2. SERTRALINE HYDROCHLORIDE [Interacting]
     Active Substance: SERTRALINE HYDROCHLORIDE
     Dosage: 100 MILLIGRAM, ONCE A DAY(1 CAPSULE IN THE EVENING FROM 04/29 TO 06/24/2024 THEN 2 CAPSULES IN THE E
     Route: 048
     Dates: start: 20240625
  3. RISPERIDONE [Interacting]
     Active Substance: RISPERIDONE
     Indication: Dementia Alzheimer^s type
     Dosage: 1 DOSAGE FORM, ONCE A DAY (1CP LE SOIR)
     Route: 048
     Dates: start: 20240429, end: 20240703
  4. CALCIUM\CHOLECALCIFEROL [Concomitant]
     Active Substance: CALCIUM\CHOLECALCIFEROL
     Indication: Multiple fractures
     Dosage: 1 DOSAGE FORM, ONCE A DAY (1 SACHET AT 10 A.M.)
     Route: 048
     Dates: start: 20240430
  5. DAFALGAN [Concomitant]
     Active Substance: ACETAMINOPHEN
     Indication: Pain
     Dosage: 6 DOSAGE FORM, ONCE A DAY (2CP MATIN, MIDI ET SOIR  )
     Route: 048
     Dates: start: 20240610
  6. ELIQUIS [Concomitant]
     Active Substance: APIXABAN
     Indication: Pulmonary embolism
     Dosage: 2 DOSAGE FORM, ONCE A DAY (1 TABLET MORNING AND EVENING)
     Route: 048
     Dates: start: 20240519
  7. LANSOPRAZOLE [Concomitant]
     Active Substance: LANSOPRAZOLE
     Indication: Barrett^s oesophagus
     Dosage: 1 DOSAGE FORM, ONCE A DAY (1 TABLET IN THE EVENING)
     Route: 048
     Dates: start: 20240429
  8. CYANOCOBALAMIN [Concomitant]
     Active Substance: CYANOCOBALAMIN
     Indication: Vitamin B12 deficiency
     Dosage: 1 DOSAGE FORM, ONCE A DAY (1 AMP EVERY 28 DAYS)
     Route: 048
     Dates: start: 20240528

REACTIONS (4)
  - Loss of consciousness [Recovered/Resolved]
  - Electrocardiogram QT prolonged [Recovering/Resolving]
  - Malaise [Recovered/Resolved]
  - Drug interaction [Recovered/Resolved]

NARRATIVE: CASE EVENT DATE: 20240702
